FAERS Safety Report 7526321-1 (Version None)
Quarter: 2011Q2

REPORT INFORMATION
  Report Type: 
  Country: None (occurrence: None)
  Receive Date: 20110603
  Receipt Date: 20110603
  Transmission Date: 20111010
  Serious: Yes (Hospitalization, Other)
  Sender: FDA-Public Use
  Company Number: None

PATIENT
  Age: 56 Year
  Sex: Male

DRUGS (3)
  1. AVELOX [Suspect]
     Indication: PNEUMONITIS
     Dosage: 400MG Q24H IV 1 DOSE
     Route: 042
     Dates: start: 20110119, end: 20110119
  2. AVELOX [Suspect]
     Indication: PYREXIA
     Dosage: 400MG Q24H IV 1 DOSE
     Route: 042
     Dates: start: 20110119, end: 20110119
  3. AVELOX [Suspect]
     Indication: LEUKOCYTOSIS
     Dosage: 400MG Q24H IV 1 DOSE
     Route: 042
     Dates: start: 20110119, end: 20110119

REACTIONS (3)
  - ATRIAL FIBRILLATION [None]
  - TACHYCARDIA [None]
  - TROPONIN INCREASED [None]
